FAERS Safety Report 4860851-6 (Version None)
Quarter: 2005Q4

REPORT INFORMATION
  Report Type: 
  Country: None (occurrence: None)
  Receive Date: 20051220
  Receipt Date: 20051209
  Transmission Date: 20060501
  Serious: Yes (Other)
  Sender: FDA-Public Use
  Company Number: CA-BRISTOL-MYERS SQUIBB COMPANY-13219126

PATIENT
  Age: 71 Year
  Sex: Female

DRUGS (1)
  1. TEQUIN [Suspect]
     Route: 042

REACTIONS (1)
  - HYPERGLYCAEMIA [None]
